FAERS Safety Report 23949425 (Version 1)
Quarter: 2024Q2

REPORT INFORMATION
  Report Type: Spontaneous
  Country: CN (occurrence: CN)
  Receive Date: 20240607
  Receipt Date: 20240607
  Transmission Date: 20240716
  Serious: Yes (Other)
  Sender: FDA-Public Use
  Company Number: CN-SUN PHARMACEUTICAL INDUSTRIES LTD-2024R1-450212

PATIENT
  Age: 46 Year
  Sex: Male

DRUGS (2)
  1. PREDNISONE [Suspect]
     Active Substance: PREDNISONE
     Indication: Enteritis
     Dosage: 40 MILLIGRAM, DAILY
     Route: 048
     Dates: end: 201812
  2. PREDNISONE [Suspect]
     Active Substance: PREDNISONE
     Indication: Pancreatitis acute

REACTIONS (1)
  - Disease recurrence [Unknown]
